FAERS Safety Report 4754045-2 (Version None)
Quarter: 2005Q3

REPORT INFORMATION
  Report Type: 
  Country: None (occurrence: None)
  Receive Date: 20050826
  Receipt Date: 20050411
  Transmission Date: 20060218
  Serious: Yes (Other)
  Sender: FDA-Public Use
  Company Number: US-MERCK-0504USA01603

PATIENT
  Age: 53 Year
  Sex: Male
  Weight: 89 kg

DRUGS (4)
  1. VIOXX [Suspect]
     Indication: POLYMYALGIA RHEUMATICA
     Route: 048
     Dates: start: 20001023, end: 20040903
  2. VIOXX [Suspect]
     Route: 048
     Dates: start: 20001023, end: 20040903
  3. COZAAR [Concomitant]
     Indication: HYPERTENSION
     Route: 048
  4. CARDURA [Concomitant]
     Indication: HYPERTENSION
     Route: 048
     Dates: start: 19990710, end: 20010601

REACTIONS (7)
  - ATHEROSCLEROSIS [None]
  - BLOOD TRIGLYCERIDES INCREASED [None]
  - CARDIAC DISORDER [None]
  - DYSPEPSIA [None]
  - GASTROOESOPHAGEAL REFLUX DISEASE [None]
  - KNEE OPERATION [None]
  - MYOCARDIAL INFARCTION [None]
